FAERS Safety Report 20939050 (Version 1)
Quarter: 2022Q2

REPORT INFORMATION
  Report Type: Spontaneous
  Country: US (occurrence: US)
  Receive Date: 20220609
  Receipt Date: 20220609
  Transmission Date: 20220721
  Serious: Yes (Death, Life-Threatening, Hospitalization, Other)
  Sender: FDA-Public Use
  Company Number: US-UNITED THERAPEUTICS-UNT-2022-009112

PATIENT
  Age: 15 Year
  Sex: Male

DRUGS (4)
  1. REMODULIN [Suspect]
     Active Substance: TREPROSTINIL
     Indication: Malignant atrophic papulosis
     Dosage: UNK, CONTINUING
     Route: 058
     Dates: end: 2014
  2. REMODULIN [Suspect]
     Active Substance: TREPROSTINIL
     Dosage: UNK, CONTINUING
     Route: 058
  3. ORENITRAM [Suspect]
     Active Substance: TREPROSTINIL
     Indication: Malignant atrophic papulosis
     Dosage: UNK
     Route: 048
     Dates: start: 2014
  4. ECULIZUMAB [Concomitant]
     Active Substance: ECULIZUMAB
     Indication: Malignant atrophic papulosis
     Dosage: 1500 MG, Q2WK
     Route: 065

REACTIONS (21)
  - Cardiac arrest [Fatal]
  - Pulmonary embolism [Fatal]
  - Right ventricular dysfunction [Unknown]
  - Cardiopulmonary failure [Unknown]
  - Pericarditis constrictive [Unknown]
  - Peripheral swelling [Unknown]
  - Pleural effusion [Unknown]
  - Abdominal pain [Unknown]
  - Abdominal distension [Unknown]
  - Post procedural complication [Unknown]
  - Skin lesion [Unknown]
  - Decreased appetite [Unknown]
  - Weight decreased [Unknown]
  - Fatigue [Unknown]
  - Dyspnoea [Unknown]
  - Oedema peripheral [Unknown]
  - Pulmonary function test decreased [Unknown]
  - Malignant atrophic papulosis [Unknown]
  - Infusion site irritation [Unknown]
  - Infusion site pain [Unknown]
  - Off label use [Unknown]

NARRATIVE: CASE EVENT DATE: 20160101
